FAERS Safety Report 9522744 (Version 1)
Quarter: 2013Q1

REPORT INFORMATION
  Report Type: Spontaneous
  Country: US (occurrence: None)
  Receive Date: 20130305
  Receipt Date: 20130305
  Transmission Date: 20140127
  Serious: Yes (Hospitalization)
  Sender: FDA-Public Use
  Company Number: 163-21880-12080359

PATIENT
  Age: 79 Year
  Sex: Female

DRUGS (9)
  1. REVLIMID (LENALIDOMIDE) (CAPSULES) [Suspect]
     Indication: TRANSITIONAL CELL CARCINOMA
     Route: 048
     Dates: start: 20120321, end: 20120904
  2. MEROPENEM [Concomitant]
  3. FLAGYL (METRONIDAZOLE) [Concomitant]
  4. LEVAQUIN (LEVOFLOXACIN) [Concomitant]
  5. FLUCONAZOLE [Concomitant]
  6. ADVAIR (SERETIDE MITE) [Concomitant]
  7. COMBIVENT [Concomitant]
  8. OXYGEN [Concomitant]
  9. APREPITANT [Concomitant]

REACTIONS (3)
  - Febrile neutropenia [None]
  - Vomiting [None]
  - Diarrhoea infectious [None]
